FAERS Safety Report 9009477 (Version 2)
Quarter: 2013Q1

REPORT INFORMATION
  Report Type: Spontaneous
  Country: US (occurrence: US)
  Receive Date: 20130110
  Receipt Date: 20130121
  Transmission Date: 20140127
  Serious: Yes (Other)
  Sender: FDA-Public Use
  Company Number: US-PFIZER INC-2013009465

PATIENT
  Age: 59 Year
  Sex: Female
  Weight: 65.31 kg

DRUGS (6)
  1. LYRICA [Suspect]
     Indication: NEUROPATHY PERIPHERAL
     Dosage: 150 MG, UNK
     Dates: start: 2003, end: 201210
  2. LYRICA [Suspect]
     Dosage: 200 MG, UNK
     Dates: start: 201210
  3. LASIX [Suspect]
     Indication: DIURETIC THERAPY
     Dosage: UNK
  4. METHADONE [Concomitant]
     Indication: NEURALGIA
     Dosage: 5MG IN THE MORNING,5MG IN THE AFTERNOON AND 7.5MG AT NIGHT
  5. SYNTHROID [Concomitant]
     Indication: THYROID DISORDER
     Dosage: 75 UG, DAILY
  6. HYDROCHLOROTHIAZIDE [Concomitant]
     Indication: DIURETIC THERAPY
     Dosage: 25 MG, DAILY

REACTIONS (5)
  - Oedema peripheral [Not Recovered/Not Resolved]
  - Fluid retention [Not Recovered/Not Resolved]
  - Burning sensation [Not Recovered/Not Resolved]
  - Paraesthesia [Not Recovered/Not Resolved]
  - Drug ineffective [Unknown]
